FAERS Safety Report 7964204-3 (Version None)
Quarter: 2011Q4

REPORT INFORMATION
  Report Type: 
  Country: None (occurrence: None)
  Receive Date: 20111208
  Receipt Date: 20111130
  Transmission Date: 20120403
  Serious: Yes (Hospitalization)
  Sender: FDA-Public Use
  Company Number: US-US-EMD SERONO, INC.-7099218

PATIENT
  Sex: Female
  Weight: 77 kg

DRUGS (4)
  1. REBIF [Suspect]
     Indication: MULTIPLE SCLEROSIS
     Route: 058
     Dates: start: 20070718, end: 20111118
  2. LYRICA [Concomitant]
     Indication: AFFECTIVE DISORDER
  3. REBIF [Suspect]
     Route: 058
     Dates: start: 20111128
  4. NEURONTIN [Concomitant]

REACTIONS (2)
  - MULTIPLE SCLEROSIS RELAPSE [None]
  - BLOOD POTASSIUM DECREASED [None]
